FAERS Safety Report 6727934-7 (Version None)
Quarter: 2010Q2

REPORT INFORMATION
  Report Type: 
  Country: None (occurrence: None)
  Receive Date: 20100512
  Receipt Date: 20100119
  Transmission Date: 20101027
  Serious: No
  Sender: FDA-Public Use
  Company Number: 1000011364

PATIENT
  Age: 55 Year
  Sex: Male

DRUGS (11)
  1. SAVELLA [Suspect]
     Indication: CHRONIC FATIGUE SYNDROME
     Dosage: SEE IMAGE
     Route: 048
     Dates: start: 20100109, end: 20100109
  2. SAVELLA [Suspect]
     Indication: FIBROMYALGIA
     Dosage: SEE IMAGE
     Route: 048
     Dates: start: 20100109, end: 20100109
  3. SAVELLA [Suspect]
     Indication: CHRONIC FATIGUE SYNDROME
     Dosage: SEE IMAGE
     Route: 048
     Dates: start: 20100110, end: 20100111
  4. SAVELLA [Suspect]
     Indication: FIBROMYALGIA
     Dosage: SEE IMAGE
     Route: 048
     Dates: start: 20100110, end: 20100111
  5. SAVELLA [Suspect]
     Indication: CHRONIC FATIGUE SYNDROME
     Dosage: SEE IMAGE
     Route: 048
     Dates: start: 20100112, end: 20100115
  6. SAVELLA [Suspect]
     Indication: FIBROMYALGIA
     Dosage: SEE IMAGE
     Route: 048
     Dates: start: 20100112, end: 20100115
  7. SAVELLA [Suspect]
     Indication: CHRONIC FATIGUE SYNDROME
     Dosage: SEE IMAGE
     Route: 048
     Dates: start: 20100116
  8. SAVELLA [Suspect]
     Indication: FIBROMYALGIA
     Dosage: SEE IMAGE
     Route: 048
     Dates: start: 20100116
  9. PRAVASTATIN [Concomitant]
  10. TRAZODONE HCL [Concomitant]
  11. VALTREX [Concomitant]

REACTIONS (2)
  - CONSTIPATION [None]
  - INSOMNIA [None]
